FAERS Safety Report 8782160 (Version 2)
Quarter: 2012Q4

REPORT INFORMATION
  Report Type: Report from Study
  Country: DE (occurrence: DE)
  Receive Date: 20120913
  Receipt Date: 20120925
  Transmission Date: 20130627
  Serious: Yes (Life-Threatening, Hospitalization)
  Sender: FDA-Public Use
  Company Number: DE-GENZYME-CLOF-1002294

PATIENT
  Age: 3 Year
  Sex: Male
  Weight: 18 kg

DRUGS (11)
  1. EVOLTRA [Suspect]
     Indication: ACUTE LEUKAEMIA
     Dosage: 18.90 mg, qd
     Route: 042
     Dates: start: 20120904, end: 20120905
  2. DAUNOXOME [Suspect]
     Indication: ACUTE LEUKAEMIA
     Dosage: 37.80 mg, qd
     Route: 042
     Dates: start: 20120904, end: 20120904
  3. ARA-C [Suspect]
     Indication: ACUTE LEUKAEMIA
     Dosage: 1260 mg, qd
     Route: 042
     Dates: start: 20120904, end: 20120905
  4. CALCIUM GLUCONATE [Concomitant]
     Dosage: 10 ml, qd
     Route: 042
     Dates: start: 20120906
  5. FASTURTEC [Concomitant]
     Indication: BLOOD URIC ACID DECREASED
     Dosage: 1.5 mg, qd
     Route: 042
     Dates: start: 20120904
  6. REFOBACIN [Concomitant]
     Indication: PYREXIA
     Dosage: 70 mg, qd
     Route: 042
     Dates: start: 20120905
  7. TAZOBAC [Concomitant]
     Indication: PYREXIA
     Dosage: 4.2 mg, qd
     Route: 042
     Dates: start: 20120905
  8. ZOFRAN [Concomitant]
     Indication: ANTIEMETIC SUPPORTIVE CARE
     Dosage: 8 mg, qd
     Route: 042
     Dates: start: 20120904
  9. TRAMADOL [Concomitant]
     Indication: PAIN
     Dosage: 120 mg, qd
     Route: 065
     Dates: start: 20120905
  10. ROCEPHIN [Concomitant]
     Indication: PYREXIA
     Dosage: 1.2 g, qd
     Route: 042
     Dates: start: 20120905
  11. KONAKION [Concomitant]
     Indication: PROPHYLAXIS
     Dosage: 2 mg, qd
     Route: 042
     Dates: start: 20120905

REACTIONS (5)
  - Disseminated intravascular coagulation [Recovered/Resolved]
  - Ascites [Not Recovered/Not Resolved]
  - Urine output decreased [Recovered/Resolved]
  - Hypoxia [Recovered/Resolved]
  - Capillary leak syndrome [Recovered/Resolved]
